FAERS Safety Report 23264461 (Version 2)
Quarter: 2024Q4

REPORT INFORMATION
  Report Type: Spontaneous
  Country: US (occurrence: US)
  Receive Date: 20231205
  Receipt Date: 20241227
  Transmission Date: 20250114
  Serious: No
  Sender: SANOFI AVENTIS
  Company Number: US-SA-SAC20231128000863

PATIENT
  Age: 7 Year
  Sex: Female

DRUGS (15)
  1. DUPIXENT [Suspect]
     Active Substance: DUPILUMAB
     Indication: Eosinophilic oesophagitis
     Dosage: 200 MG, QOW
     Route: 058
     Dates: start: 20230627
  2. EPINEPHRINE [Concomitant]
     Active Substance: EPINEPHRINE
     Dosage: UNK
  3. FLOVENT [Concomitant]
     Active Substance: FLUTICASONE PROPIONATE
     Dosage: UNK
  4. IBUPROFEN SODIUM [Concomitant]
     Active Substance: IBUPROFEN SODIUM
     Dosage: UNK
  5. LORATADINE [Concomitant]
     Active Substance: LORATADINE
     Dosage: UNK
  6. TYLENOL [Concomitant]
     Active Substance: ACETAMINOPHEN
     Dosage: UNK
  7. VITAMIN D3 [Concomitant]
     Active Substance: CHOLECALCIFEROL
     Dosage: UNK
  8. SERTRALINE [Concomitant]
     Active Substance: SERTRALINE HYDROCHLORIDE
  9. DIPHENHYDRAMINE [Concomitant]
     Active Substance: DIPHENHYDRAMINE
  10. CLONIDINE [Concomitant]
     Active Substance: CLONIDINE
  11. ZOLOFT [Concomitant]
     Active Substance: SERTRALINE HYDROCHLORIDE
  12. METHYLPHENIDATE [Concomitant]
     Active Substance: METHYLPHENIDATE
  13. SERTRALINE [Concomitant]
     Active Substance: SERTRALINE HYDROCHLORIDE
  14. EPINEPHRINE [Concomitant]
     Active Substance: EPINEPHRINE
  15. FLOVENT HFA [Concomitant]
     Active Substance: FLUTICASONE PROPIONATE

REACTIONS (5)
  - Impaired quality of life [Unknown]
  - Eosinophilic oesophagitis [Unknown]
  - Drug ineffective [Unknown]
  - COVID-19 [Unknown]
  - Infection [Unknown]

NARRATIVE: CASE EVENT DATE: 20230101
